FAERS Safety Report 19540497 (Version 1)
Quarter: 2021Q3

REPORT INFORMATION
  Report Type: Spontaneous
  Country: IT (occurrence: IT)
  Receive Date: 20210713
  Receipt Date: 20210713
  Transmission Date: 20211014
  Serious: Yes (Life-Threatening, Hospitalization, Other)
  Sender: FDA-Public Use
  Company Number: IT-AMNEAL PHARMACEUTICALS-2021-AMRX-02726

PATIENT
  Age: 44 Year
  Sex: Female

DRUGS (1)
  1. FLECAINIDE ACETATE. [Suspect]
     Active Substance: FLECAINIDE ACETATE
     Indication: SUICIDE ATTEMPT
     Dosage: 20 TABLETS, SINGLE
     Route: 048

REACTIONS (2)
  - Intentional overdose [Unknown]
  - Stress cardiomyopathy [Recovered/Resolved]
